FAERS Safety Report 5120691-X (Version None)
Quarter: 2006Q4

REPORT INFORMATION
  Report Type: 
  Country: None (occurrence: None)
  Receive Date: 20061004
  Receipt Date: 20060925
  Transmission Date: 20070319
  Serious: Yes (Congenital Anomaly)
  Sender: FDA-Public Use
  Company Number: GB-BOEHRINGER INGELHEIM GMBH, GERMANY-2006-UK-04057UK

PATIENT
  Weight: 3.05 kg

DRUGS (2)
  1. VIRAMUNE [Suspect]
     Dosage: 400MG DAILY TRANSPLACENTAL
  2. COMBIVIR [Suspect]
     Dosage: 1 DAILY TRANSPLACENT

REACTIONS (2)
  - DRUG EXPOSURE DURING PREGNANCY [None]
  - HAEMANGIOMA OF SKIN [None]
